FAERS Safety Report 22017768 (Version 1)
Quarter: 2023Q1

REPORT INFORMATION
  Report Type: Spontaneous
  Country: US (occurrence: US)
  Receive Date: 20230221
  Receipt Date: 20230221
  Transmission Date: 20230417
  Serious: No
  Sender: FDA-Public Use
  Company Number: US-FreseniusKabi-FK202302161

PATIENT
  Age: 84 Year
  Sex: Female
  Weight: 49 kg

DRUGS (4)
  1. SMOFLIPID [Suspect]
     Active Substance: FISH OIL\MEDIUM-CHAIN TRIGLYCERIDES\OLIVE OIL\SOYBEAN OIL
     Indication: Parenteral nutrition
     Dosage: CONCENTRATION 20 PERCENT?SMOF REDUCED FROM DAILY TO 3 X WEEK (55 GM/DAY, 3 X WEEK)
     Route: 065
     Dates: start: 202109
  2. SMOFLIPID [Suspect]
     Active Substance: FISH OIL\MEDIUM-CHAIN TRIGLYCERIDES\OLIVE OIL\SOYBEAN OIL
     Indication: Liver function test increased
     Route: 065
     Dates: start: 202109
  3. VITAMIN D NOS [Concomitant]
     Active Substance: VITAMIN D NOS
     Indication: Product used for unknown indication
  4. VITAMINS [Concomitant]
     Active Substance: VITAMINS
     Indication: Product used for unknown indication
     Dosage: 4 X WEEK
     Route: 048

REACTIONS (2)
  - Off label use [Not Recovered/Not Resolved]
  - Fatty acid deficiency [Not Recovered/Not Resolved]

NARRATIVE: CASE EVENT DATE: 20210901
